FAERS Safety Report 10639414 (Version 2)
Quarter: 2014Q4

REPORT INFORMATION
  Report Type: Spontaneous
  Country: CZ (occurrence: CZ)
  Receive Date: 20141208
  Receipt Date: 20141224
  Transmission Date: 20150529
  Serious: Yes (Other)
  Sender: FDA-Public Use
  Company Number: PHHY2014CZ158536

PATIENT
  Sex: Male

DRUGS (5)
  1. CYCLOPHOSPHAMIDE. [Suspect]
     Active Substance: CYCLOPHOSPHAMIDE
     Indication: ERDHEIM-CHESTER DISEASE
     Dosage: 150 MG/M2, UNK
     Route: 042
     Dates: start: 20091013, end: 201006
  2. DEXAMETHASONE. [Suspect]
     Active Substance: DEXAMETHASONE
     Indication: ERDHEIM-CHESTER DISEASE
     Dosage: 24 MG, UNK
     Route: 042
     Dates: start: 20091013, end: 201006
  3. LITAK [Suspect]
     Active Substance: CLADRIBINE
     Indication: ERDHEIM-CHESTER DISEASE
     Dosage: 5 MG/M2, UNK
     Route: 042
     Dates: start: 20091013, end: 201006
  4. BONEFOS [Concomitant]
     Active Substance: CLODRONATE DISODIUM
     Indication: BONE DISORDER
  5. BONEFOS [Concomitant]
     Active Substance: CLODRONATE DISODIUM
     Indication: OSTEOSCLEROSIS
     Route: 065

REACTIONS (8)
  - Cytopenia [Recovered/Resolved]
  - Neutropenia [Recovered/Resolved]
  - Bone marrow failure [Recovered/Resolved]
  - Diabetes insipidus [Not Recovered/Not Resolved]
  - Secondary immunodeficiency [Recovered/Resolved]
  - Herpes zoster [Recovered/Resolved]
  - Lymphocyte count decreased [Recovered/Resolved]
  - Neutrophil count decreased [Recovered/Resolved]
